FAERS Safety Report 5477914-7 (Version None)
Quarter: 2007Q4

REPORT INFORMATION
  Report Type: 
  Country: None (occurrence: None)
  Receive Date: 20071005
  Receipt Date: 20070926
  Transmission Date: 20080405
  Serious: Yes (Other)
  Sender: FDA-Public Use
  Company Number: PHBS2007IT16244

PATIENT
  Sex: Male

DRUGS (1)
  1. SANDIMMUNE [Suspect]
     Dosage: UNK, UNK
     Route: 065
     Dates: end: 20070923

REACTIONS (3)
  - DERMATITIS [None]
  - LIPASE INCREASED [None]
  - PYREXIA [None]
